FAERS Safety Report 6883976-2 (Version None)
Quarter: 2010Q3

REPORT INFORMATION
  Report Type: 
  Country: None (occurrence: None)
  Receive Date: 20100729
  Receipt Date: 20100719
  Transmission Date: 20110219
  Serious: Yes (Other)
  Sender: FDA-Public Use
  Company Number: US-JNJFOC-20100706269

PATIENT
  Age: 21 Year
  Sex: Male

DRUGS (1)
  1. INVEGA [Suspect]
     Indication: SCHIZOAFFECTIVE DISORDER
     Route: 048

REACTIONS (1)
  - PRIAPISM [None]
